FAERS Safety Report 7693871-7 (Version None)
Quarter: 2011Q3

REPORT INFORMATION
  Report Type: 
  Country: None (occurrence: None)
  Receive Date: 20110816
  Receipt Date: 20110804
  Transmission Date: 20111222
  Serious: Yes (Other)
  Sender: FDA-Public Use
  Company Number: 1000022540

PATIENT
  Age: 43 Year
  Sex: Female

DRUGS (2)
  1. TEGRETOL (CARBAMAZEPINE) (TABLETS) (CARBAMAZEPINE) [Concomitant]
  2. ESCITALOPRAM [Suspect]
     Indication: EPILEPSY
     Dosage: 1 DOSAGE FORMS (1 DOSAGE FORMS,1 IN 1 D),ORAL
     Route: 048
     Dates: start: 20100513, end: 20110512

REACTIONS (5)
  - VERTIGO [None]
  - VOMITING [None]
  - BLOOD UREA DECREASED [None]
  - BLOOD CREATININE DECREASED [None]
  - HYPONATRAEMIA [None]
